FAERS Safety Report 25947363 (Version 1)
Quarter: 2025Q4

REPORT INFORMATION
  Report Type: Spontaneous
  Country: EU (occurrence: EU)
  Receive Date: 20251022
  Receipt Date: 20251022
  Transmission Date: 20260118
  Serious: Yes (Other)
  Sender: HIKMA
  Company Number: None

PATIENT
  Age: 10 Year
  Sex: Female

DRUGS (2)
  1. ROCURONIUM [Suspect]
     Active Substance: ROCURONIUM BROMIDE
     Indication: Anaesthesia
     Dosage: UNKNOWN
     Route: 042
     Dates: start: 20250702, end: 20250702
  2. CEFAZOLIN [Concomitant]
     Active Substance: CEFAZOLIN
     Indication: Tonsillectomy
     Dosage: SINGLE PREOPERATIVE DOSE
     Route: 042
     Dates: start: 20250702, end: 20250702

REACTIONS (5)
  - Choking sensation [Recovered/Resolved]
  - Rash [Recovered/Resolved]
  - Lip oedema [Recovered/Resolved]
  - Tongue oedema [Recovered/Resolved]
  - Anaphylactic reaction [Recovered/Resolved]

NARRATIVE: CASE EVENT DATE: 20250702
